FAERS Safety Report 7428762-X (Version None)
Quarter: 2011Q2

REPORT INFORMATION
  Report Type: 
  Country: None (occurrence: None)
  Receive Date: 20110421
  Receipt Date: 20110418
  Transmission Date: 20111010
  Serious: Yes (Hospitalization)
  Sender: FDA-Public Use
  Company Number: US-PFIZER INC-2011085280

PATIENT
  Age: 76 Year
  Sex: Female

DRUGS (3)
  1. ALDACTONE [Suspect]
     Dosage: UNK
  2. COREG [Suspect]
  3. LOSARTAN [Suspect]

REACTIONS (3)
  - MENTAL DISORDER [None]
  - FLUID RETENTION [None]
  - CONFUSIONAL STATE [None]
